FAERS Safety Report 9219503 (Version 1)
Quarter: 2013Q2

REPORT INFORMATION
  Report Type: Spontaneous
  Country: US (occurrence: US)
  Receive Date: 20130409
  Receipt Date: 20130409
  Transmission Date: 20140414
  Serious: No
  Sender: FDA-Public Use
  Company Number: US-PFIZER INC-2013108146

PATIENT
  Sex: Female

DRUGS (4)
  1. FLUOROURACIL [Suspect]
     Dosage: UNK
     Route: 042
  2. IRINOTECAN HCL [Suspect]
     Dosage: UNK
     Route: 042
  3. ZALTRAP [Suspect]
     Dosage: UNK
     Route: 042
  4. FOLINIC ACID [Suspect]
     Dosage: UNK
     Route: 042

REACTIONS (3)
  - Proteinuria [Unknown]
  - Blood pressure increased [Unknown]
  - Diarrhoea [Unknown]
